FAERS Safety Report 8278000-3 (Version None)
Quarter: 2012Q2

REPORT INFORMATION
  Report Type: 
  Country: None (occurrence: None)
  Receive Date: 20120412
  Receipt Date: 20120402
  Transmission Date: 20120825
  Serious: Yes (Hospitalization)
  Sender: FDA-Public Use
  Company Number: IN-PFIZER INC-2012084086

PATIENT
  Age: 47 Year
  Sex: Female

DRUGS (2)
  1. TRIPTORELIN PAMOATE [Suspect]
     Indication: BREAST CANCER
     Dosage: ONCE/28 DAYS
     Route: 042
     Dates: start: 20070706, end: 20120309
  2. EXEMESTANE [Suspect]
     Indication: BREAST CANCER
     Dosage: 25 MG, DAILY
     Route: 048
     Dates: start: 20070706, end: 20120322

REACTIONS (1)
  - INTERVERTEBRAL DISC PROTRUSION [None]
